FAERS Safety Report 9139127 (Version 1)
Quarter: 2013Q1

REPORT INFORMATION
  Report Type: Spontaneous
  Country: JP (occurrence: JP)
  Receive Date: 20130305
  Receipt Date: 20130305
  Transmission Date: 20140127
  Serious: Yes (Hospitalization)
  Sender: FDA-Public Use
  Company Number: JP-UCBSA-079701

PATIENT
  Age: 78 Year
  Sex: Male

DRUGS (4)
  1. XYZAL [Suspect]
     Indication: SEASONAL ALLERGY
     Route: 048
     Dates: start: 20130206, end: 20130212
  2. LYRICA [Concomitant]
     Route: 048
     Dates: end: 20130212
  3. ACTOS [Concomitant]
     Route: 048
     Dates: end: 20130212
  4. SIGMART [Concomitant]

REACTIONS (2)
  - Interstitial lung disease [Recovered/Resolved]
  - Dyspnoea [Unknown]
